FAERS Safety Report 9674200 (Version 2)
Quarter: 2013Q4

REPORT INFORMATION
  Report Type: Spontaneous
  Country: US (occurrence: US)
  Receive Date: 20131106
  Receipt Date: 20131106
  Transmission Date: 20140711
  Serious: No
  Sender: FDA-Public Use
  Company Number: US-AMGEN-USASP2013047000

PATIENT
  Age: 8 Month
  Sex: Male

DRUGS (9)
  1. ENBREL [Suspect]
     Indication: PRODUCT USED FOR UNKNOWN INDICATION
     Dosage: 50 MG, QWK
     Route: 063
     Dates: start: 2000
  2. PRENATAL                           /00231801/ [Concomitant]
     Dosage: UNK UNK, QD
     Route: 063
  3. FOLIC ACID [Concomitant]
     Dosage: UNK UNK, QD
     Route: 063
  4. DHA [Concomitant]
     Dosage: UNK UNK, QD
     Route: 063
  5. B COMPLEX                          /00212701/ [Concomitant]
     Dosage: UNK UNK, QD
     Route: 063
  6. ACETAMINOPHEN [Concomitant]
     Dosage: 2.5 ML, UNK, AS NEEDED
  7. FLUORIDE                           /90006101/ [Concomitant]
     Dosage: UNK
  8. ZANTAC [Concomitant]
     Dosage: UNK
  9. VITAMINS /90003601/ [Concomitant]
     Dosage: UNK

REACTIONS (2)
  - Exposure during breast feeding [Recovered/Resolved]
  - Gastrooesophageal reflux disease [Unknown]
